FAERS Safety Report 24824017 (Version 1)
Quarter: 2025Q1

REPORT INFORMATION
  Report Type: Spontaneous
  Country: GB (occurrence: GB)
  Receive Date: 20250109
  Receipt Date: 20250109
  Transmission Date: 20250408
  Serious: Yes (Other)
  Sender: SANDOZ
  Company Number: None

PATIENT
  Age: 66 Year
  Sex: Female
  Weight: 80 kg

DRUGS (4)
  1. AMOXICILLIN [Suspect]
     Active Substance: AMOXICILLIN
     Indication: Product used for unknown indication
     Dosage: 500 MG, Q12H
     Route: 065
     Dates: start: 20241212, end: 20241214
  2. CLARITHROMYCIN [Suspect]
     Active Substance: CLARITHROMYCIN
     Indication: Product used for unknown indication
     Dosage: 500 MG, Q12H
     Route: 065
     Dates: start: 20241212, end: 20241214
  3. LANSOPRAZOLE [Suspect]
     Active Substance: LANSOPRAZOLE
     Indication: Product used for unknown indication
     Dosage: 500 MG, Q12H
     Route: 065
     Dates: start: 20241212, end: 20241214
  4. GABAPENTIN [Concomitant]
     Active Substance: GABAPENTIN
     Indication: Product used for unknown indication
     Route: 065
     Dates: start: 20220126

REACTIONS (8)
  - Suicidal ideation [Unknown]
  - Myalgia [Unknown]
  - Hallucination [Unknown]
  - Restlessness [Unknown]
  - Nausea [Unknown]
  - Dysgeusia [Unknown]
  - Anxiety [Recovered/Resolved]
  - Decreased appetite [Unknown]

NARRATIVE: CASE EVENT DATE: 20241212
